FAERS Safety Report 7074194-6 (Version None)
Quarter: 2010Q4

REPORT INFORMATION
  Report Type: 
  Country: None (occurrence: None)
  Receive Date: 20101029
  Receipt Date: 20101022
  Transmission Date: 20110411
  Serious: Yes (Life-Threatening)
  Sender: FDA-Public Use
  Company Number: IT-GENZYME-CLOF-1001280

PATIENT
  Sex: Male

DRUGS (5)
  1. EVOLTRA [Suspect]
     Indication: ACUTE MYELOID LEUKAEMIA
     Dosage: 40 MG, QDX5
     Route: 042
     Dates: start: 20101001, end: 20101005
  2. ARACYTIN [Suspect]
     Indication: ACUTE MYELOID LEUKAEMIA
     Dosage: 2 G, QDX5
     Route: 042
     Dates: start: 20101001, end: 20101005
  3. CHEMACIN [Concomitant]
     Indication: BRONCHOPNEUMONIA
     Dosage: 1 G, UNK
     Route: 042
     Dates: start: 20101003, end: 20101010
  4. CEFTAZIDIME [Concomitant]
     Indication: BRONCHOPNEUMONIA
     Dosage: 6 G, UNK
     Route: 042
     Dates: start: 20101003, end: 20101010
  5. ALOXI [Concomitant]
     Indication: PRODUCT USED FOR UNKNOWN INDICATION
     Dosage: 1 U, UNK
     Route: 042
     Dates: start: 20101001, end: 20101003

REACTIONS (3)
  - ACUTE HEPATIC FAILURE [None]
  - HEPATIC NECROSIS [None]
  - VOMITING [None]
